FAERS Safety Report 12708103 (Version 1)
Quarter: 2016Q3

REPORT INFORMATION
  Report Type: Other
  Country: IT (occurrence: IT)
  Receive Date: 20160901
  Receipt Date: 20160901
  Transmission Date: 20161109
  Serious: Yes (Other)
  Sender: FDA-Public Use
  Company Number: IT-APOTEX-2016AP010882

PATIENT
  Age: 86 Year
  Sex: Female

DRUGS (4)
  1. TRITTICO [Suspect]
     Active Substance: TRAZODONE HYDROCHLORIDE
     Indication: CONDUCT DISORDER
     Dosage: 36 GTT, DAILY
     Route: 048
     Dates: start: 20160101, end: 20160707
  2. TRIATEC                            /00885601/ [Concomitant]
     Active Substance: RAMIPRIL
     Indication: PRODUCT USED FOR UNKNOWN INDICATION
     Dosage: UNK, UNKNOWN
     Route: 048
  3. QUETIAPINA DOC GENERICI COMPRESSE RIVESTITE CON FILM [Suspect]
     Active Substance: QUETIAPINE
     Indication: CONDUCT DISORDER
     Dosage: 2 DF, DAILY
     Route: 048
     Dates: start: 20160101, end: 20160707
  4. TALOFEN [Suspect]
     Active Substance: PROMAZINE HYDROCHLORIDE
     Indication: CONDUCT DISORDER
     Dosage: 7 GTT, DAILY
     Route: 048
     Dates: start: 20160101, end: 20160707

REACTIONS (5)
  - Agitation [Unknown]
  - Language disorder [Unknown]
  - Anger [Unknown]
  - Dysstasia [Unknown]
  - Sopor [Unknown]

NARRATIVE: CASE EVENT DATE: 20160707
